FAERS Safety Report 7340137-0 (Version None)
Quarter: 2011Q1

REPORT INFORMATION
  Report Type: 
  Country: None (occurrence: None)
  Receive Date: 20110228
  Receipt Date: 20110208
  Transmission Date: 20110831
  Serious: Yes (Death, Hospitalization)
  Sender: FDA-Public Use
  Company Number: 2011020092

PATIENT
  Age: 53 Year
  Sex: Male

DRUGS (6)
  1. ACETAMINOPHEN/HYDROCODONE (HYDROCODONE, ACETAMINOPHEN) [Concomitant]
  2. CARISOPRODOL (CARISOPRODOL) [Suspect]
  3. METHAMPHETAMINE (METHAMPHETAMINE) [Concomitant]
  4. MARIJUANA (MARIJUANA) [Concomitant]
  5. N-ACETYLCYSTEINE (N-ACETYLCYSTEINE) [Concomitant]
  6. CODEINE (CODEINE) [Concomitant]

REACTIONS (7)
  - MYOCARDIAL INFARCTION [None]
  - MULTI-ORGAN FAILURE [None]
  - HYPOTENSION [None]
  - TOXICITY TO VARIOUS AGENTS [None]
  - DRUG SCREEN POSITIVE [None]
  - BRADYCARDIA [None]
  - DRUG HYPERSENSITIVITY [None]
